FAERS Safety Report 22197069 (Version 1)
Quarter: 2023Q2

REPORT INFORMATION
  Report Type: Report from Study
  Country: CN (occurrence: CN)
  Receive Date: 20230411
  Receipt Date: 20230411
  Transmission Date: 20230722
  Serious: Yes (Death)
  Sender: FDA-Public Use
  Company Number: CN-PFIZER INC-PV202300064019

PATIENT

DRUGS (3)
  1. CISPLATIN [Suspect]
     Active Substance: CISPLATIN
     Indication: Oesophageal squamous cell carcinoma
     Dosage: 25 MG/M2, WEEKLY
     Route: 042
  2. PACLITAXEL [Suspect]
     Active Substance: PACLITAXEL
     Indication: Oesophageal squamous cell carcinoma
     Dosage: 50 MG/M2, WEEKLY
     Route: 042
  3. TORIPALIMAB [Suspect]
     Active Substance: TORIPALIMAB
     Indication: Oesophageal squamous cell carcinoma
     Dosage: 240 MG, EVERY 3 WEEKS
     Route: 042

REACTIONS (1)
  - Pneumonitis [Fatal]
